FAERS Safety Report 4767744-3 (Version None)
Quarter: 2005Q3

REPORT INFORMATION
  Report Type: 
  Country: None (occurrence: None)
  Receive Date: 20050912
  Receipt Date: 20050901
  Transmission Date: 20060218
  Serious: Yes (Hospitalization)
  Sender: FDA-Public Use
  Company Number: 2004-09-1121

PATIENT
  Age: 35 Year
  Sex: Female

DRUGS (1)
  1. TEMODAL [Suspect]
     Indication: MALIGNANT MELANOMA
     Dosage: 250 MG QD ORAL
     Route: 048
     Dates: start: 20040201, end: 20040918

REACTIONS (1)
  - COLITIS ISCHAEMIC [None]
